FAERS Safety Report 9275857 (Version 2)
Quarter: 2013Q2

REPORT INFORMATION
  Report Type: Spontaneous
  Country: US (occurrence: US)
  Receive Date: 20130507
  Receipt Date: 20130508
  Transmission Date: 20140414
  Serious: Yes (Hospitalization)
  Sender: FDA-Public Use
  Company Number: US-JNJFOC-20130416125

PATIENT
  Age: 71 Year
  Sex: Female
  Weight: 72.58 kg

DRUGS (7)
  1. BENADRYL ALLERGY ULTRATAB [Suspect]
     Indication: DRUG HYPERSENSITIVITY
     Route: 048
     Dates: start: 201303
  2. BENADRYL ALLERGY ULTRATAB [Suspect]
     Indication: DRUG HYPERSENSITIVITY
     Route: 048
     Dates: end: 20130401
  3. BLOOD PRESSURE MEDICATION NOS [Concomitant]
     Indication: HYPERTENSION
     Dosage: SINCE YEARS
     Route: 065
  4. PREDNISONE [Concomitant]
     Indication: HYPERSENSITIVITY
     Dosage: 1 PILL
     Route: 065
  5. ALLOPURINOL [Concomitant]
     Indication: GOUT
     Dosage: 100 MG DAILY, SINCE 3 YEARS
     Route: 065
     Dates: start: 2010
  6. VITAMIN D W/ CALCIUM [Concomitant]
     Indication: NUTRITIONAL SUPPLEMENTATION
     Dosage: DAILY
     Route: 065
  7. MAXIDE [Concomitant]
     Indication: DIURETIC THERAPY
     Dosage: SINCE 30 YEARS
     Route: 065
     Dates: start: 1983

REACTIONS (4)
  - Renal impairment [Recovered/Resolved]
  - Dehydration [Recovered/Resolved]
  - Pruritus [Recovered/Resolved]
  - Drug ineffective for unapproved indication [Unknown]
